FAERS Safety Report 4331572-3 (Version None)
Quarter: 2004Q1

REPORT INFORMATION
  Report Type: 
  Country: None (occurrence: None)
  Receive Date: 20040329
  Receipt Date: 20040317
  Transmission Date: 20041129
  Serious: Yes (Disabling)
  Sender: FDA-Public Use
  Company Number: 2004AC00037

PATIENT
  Age: 7 Year
  Sex: Male
  Weight: 36 kg

DRUGS (5)
  1. LIDOCAINE 1% [Suspect]
     Indication: ANAESTHESIA
  2. BUPIVACAINE [Suspect]
     Indication: ANAESTHESIA
     Dosage: 5 ML ED
  3. BUPIVACAINE [Suspect]
     Indication: ANAESTHESIA
     Dosage: 5 ML ED
  4. PROPOFOL [Concomitant]
  5. ROCURONIUM BROMIDE [Concomitant]

REACTIONS (18)
  - ANAESTHETIC COMPLICATION [None]
  - ANURIA [None]
  - ASTHENIA [None]
  - CONSTIPATION [None]
  - DIFFICULTY IN WALKING [None]
  - FLUSHING [None]
  - HYPERHIDROSIS [None]
  - HYPOAESTHESIA [None]
  - HYPOTENSION [None]
  - INTESTINAL FUNCTIONAL DISORDER [None]
  - MYELOPATHY [None]
  - OXYGEN SATURATION DECREASED [None]
  - PAIN [None]
  - SENSORY LOSS [None]
  - SOMNOLENCE [None]
  - SPINAL CORD INJURY [None]
  - SYRINGOMYELIA [None]
  - URINARY HESITATION [None]
